FAERS Safety Report 15426110 (Version 1)
Quarter: 2018Q3

REPORT INFORMATION
  Report Type: Spontaneous
  Country: ZA (occurrence: ZA)
  Receive Date: 20180925
  Receipt Date: 20180925
  Transmission Date: 20181010
  Serious: Yes (Other)
  Sender: FDA-Public Use
  Company Number: ZA-SA-2018SA264514

PATIENT
  Sex: Male

DRUGS (1)
  1. KETEK [Suspect]
     Active Substance: TELITHROMYCIN
     Indication: UPPER RESPIRATORY TRACT INFECTION

REACTIONS (2)
  - Lower respiratory tract infection [Unknown]
  - Drug ineffective [Unknown]
